FAERS Safety Report 19472686 (Version 1)
Quarter: 2021Q2

REPORT INFORMATION
  Report Type: Spontaneous
  Country: US (occurrence: US)
  Receive Date: 20210629
  Receipt Date: 20210629
  Transmission Date: 20210717
  Serious: No
  Sender: FDA-Public Use
  Company Number: US-GLAXOSMITHKLINE-US1969AMR000002

PATIENT

DRUGS (1)
  1. BENLYSTA [Suspect]
     Active Substance: BELIMUMAB
     Indication: SYSTEMIC LUPUS ERYTHEMATOSUS
     Dosage: 200 MG, WE

REACTIONS (6)
  - Oropharyngeal pain [Unknown]
  - Impaired healing [Unknown]
  - Fatigue [Unknown]
  - Fungal infection [Unknown]
  - Mass excision [Unknown]
  - Product dose omission issue [Unknown]
